FAERS Safety Report 15066410 (Version 1)
Quarter: 2018Q2

REPORT INFORMATION
  Report Type: Spontaneous
  Country: US (occurrence: US)
  Receive Date: 20180606
  Receipt Date: 20180606
  Transmission Date: 20180711
  Serious: Yes (Other)
  Sender: FDA-Public Use
  Company Number: None

PATIENT
  Age: 50 Year
  Sex: Female
  Weight: 72 kg

DRUGS (8)
  1. GINGER. [Concomitant]
     Active Substance: GINGER
  2. MAGNESIUM [Concomitant]
     Active Substance: MAGNESIUM
  3. ZYRTEC [Suspect]
     Active Substance: CETIRIZINE HYDROCHLORIDE
     Indication: MULTIPLE ALLERGIES
     Route: 048
     Dates: start: 20180506, end: 20180529
  4. GINSENG [Concomitant]
     Active Substance: ASIAN GINSENG
  5. SERIPHOS [Concomitant]
  6. LYSINE [Concomitant]
     Active Substance: LYSINE
  7. TUMERIC [Concomitant]
     Active Substance: HERBALS\TURMERIC
  8. ZINC CARSONINE [Concomitant]

REACTIONS (2)
  - Pruritus [None]
  - Hypersensitivity [None]

NARRATIVE: CASE EVENT DATE: 20180529
